FAERS Safety Report 6371470-7 (Version None)
Quarter: 2009Q3

REPORT INFORMATION
  Report Type: 
  Country: None (occurrence: None)
  Receive Date: 20090923
  Receipt Date: 20080102
  Transmission Date: 20100115
  Serious: Yes (Other)
  Sender: FDA-Public Use
  Company Number: US-ASTRAZENECA-2007UW09628

PATIENT
  Age: 465 Month
  Sex: Female
  Weight: 124.7 kg

DRUGS (12)
  1. SEROQUEL [Suspect]
     Indication: SLEEP DISORDER
     Route: 048
     Dates: start: 19990101, end: 20050101
  2. SEROQUEL [Suspect]
     Indication: ANXIETY
     Route: 048
     Dates: start: 19990101, end: 20050101
  3. SEROQUEL [Suspect]
     Dosage: 100-200 MG
     Route: 048
     Dates: start: 20020309
  4. SEROQUEL [Suspect]
     Dosage: 100-200 MG
     Route: 048
     Dates: start: 20020309
  5. XANAX [Concomitant]
     Dosage: 0.25 MG PO TID PM
     Route: 048
     Dates: start: 19990303
  6. PREVACID [Concomitant]
     Route: 048
     Dates: start: 20020309
  7. SERZONE [Concomitant]
     Route: 048
     Dates: start: 19990303
  8. TRILEPTAL [Concomitant]
     Dates: start: 20020309
  9. NEXIUM [Concomitant]
     Route: 048
     Dates: start: 20020309
  10. LEXAPRO [Concomitant]
     Route: 048
     Dates: start: 20030505
  11. ATIVAN [Concomitant]
     Route: 048
     Dates: start: 20030505
  12. PRILOSEC [Concomitant]
     Dosage: 20-40 MG
     Route: 048
     Dates: start: 20000104

REACTIONS (1)
  - PANCREATITIS ACUTE [None]
